FAERS Safety Report 11525342 (Version 3)
Quarter: 2015Q4

REPORT INFORMATION
  Report Type: Report from Study
  Country: DE (occurrence: DE)
  Receive Date: 20150918
  Receipt Date: 20151013
  Transmission Date: 20160304
  Serious: Yes (Hospitalization)
  Sender: FDA-Public Use
  Company Number: DE-ABBVIE-15P-062-1463402-00

PATIENT
  Age: 31 Year
  Sex: Male

DRUGS (2)
  1. KIVEXA [Suspect]
     Active Substance: ABACAVIR SULFATE\LAMIVUDINE
     Indication: PRODUCT USED FOR UNKNOWN INDICATION
     Route: 065
     Dates: start: 20130408
  2. KALETRA [Suspect]
     Active Substance: LOPINAVIR\RITONAVIR
     Indication: PRODUCT USED FOR UNKNOWN INDICATION
     Route: 065
     Dates: start: 20130408

REACTIONS (13)
  - Pyrexia [Unknown]
  - Diarrhoea [Unknown]
  - Myalgia [Unknown]
  - Nervous system disorder [Unknown]
  - Stomatitis [Unknown]
  - Nausea [Unknown]
  - CD4 lymphocytes abnormal [Unknown]
  - Vomiting [Unknown]
  - Ophthalmic herpes zoster [Unknown]
  - Cerebral disorder [Unknown]
  - Hyperhidrosis [Unknown]
  - Arthralgia [Unknown]
  - Chills [Unknown]

NARRATIVE: CASE EVENT DATE: 20130408
